FAERS Safety Report 9474186 (Version 1)
Quarter: 2013Q3

REPORT INFORMATION
  Report Type: Spontaneous
  Country: FR (occurrence: None)
  Receive Date: 20130820
  Receipt Date: 20130820
  Transmission Date: 20140515
  Serious: Yes (Death)
  Sender: FDA-Public Use
  Company Number: 2013FR00549

PATIENT
  Sex: 0

DRUGS (2)
  1. GEMCITABINE [Suspect]
     Indication: PANCREATIC CARCINOMA METASTATIC
     Dosage: OVER 30 MIN ON DAYS 1, 8 , 15 AND  22 OF CYCLE 1, INTRAVENOUSE
     Route: 042
  2. PLACEBO [Suspect]
     Indication: PANCREATIC CARCINOMA METASTATIC
     Dosage: OVER 1 H ONCE EVERY 2 WEEKS ON DAYS 1 AND 15 OF EVERY 4-WEEK CYCLE, INTRAVENOUS
     Route: 042

REACTIONS (1)
  - Renal failure acute [None]
